FAERS Safety Report 5046020-8 (Version None)
Quarter: 2006Q3

REPORT INFORMATION
  Report Type: 
  Country: None (occurrence: None)
  Receive Date: 20060710
  Receipt Date: 20060505
  Transmission Date: 20061208
  Serious: Yes (Other)
  Sender: FDA-Public Use
  Company Number: PHFR2006GB01643

PATIENT
  Age: 64 Year
  Sex: Female

DRUGS (8)
  1. ADALAT - SLOW RELEASE [Concomitant]
     Dosage: 10MG DAILY
     Route: 048
  2. MIZOLASTINE [Concomitant]
     Dosage: 10MG/DAY
     Route: 048
     Dates: start: 20060201
  3. LACTULOSE [Concomitant]
     Dosage: 10 ML, TID
     Route: 048
     Dates: start: 20040101
  4. SYMBICORT TURBUHALER [Concomitant]
     Dosage: 2 OT, BID
     Dates: start: 20050101
  5. NASONEX [Concomitant]
     Dosage: 2 OT, QD
     Route: 061
     Dates: start: 20050101
  6. MIZOLASTINE [Concomitant]
     Dosage: 10 MG, QD
     Route: 048
     Dates: start: 20060201
  7. FEMARA [Suspect]
     Indication: BREAST CANCER
     Dosage: 4 MG, QD
     Route: 065
     Dates: start: 20060503, end: 20060504
  8. FEMARA [Suspect]
     Dates: start: 20060515

REACTIONS (3)
  - MUSCLE CONTRACTURE [None]
  - MUSCULOSKELETAL STIFFNESS [None]
  - SOMNOLENCE [None]
